FAERS Safety Report 5571286-5 (Version None)
Quarter: 2007Q4

REPORT INFORMATION
  Report Type: 
  Country: None (occurrence: None)
  Receive Date: 20071221
  Receipt Date: 20070703
  Transmission Date: 20080405
  Serious: No
  Sender: FDA-Public Use
  Company Number: A0649311A

PATIENT
  Age: 55 Year
  Sex: Female
  Weight: 81.8 kg

DRUGS (5)
  1. FLONASE [Suspect]
     Route: 045
  2. FLUTICASONE PROPIONATE [Suspect]
     Dosage: 1SPR TWICE PER DAY
     Route: 045
  3. ADVAIR DISKUS 100/50 [Concomitant]
  4. CLARINEX [Concomitant]
     Dates: start: 20070401
  5. VITAMIN CAP [Concomitant]

REACTIONS (2)
  - PHARMACEUTICAL PRODUCT COMPLAINT [None]
  - SINUS DISORDER [None]
